FAERS Safety Report 8623798 (Version 2)
Quarter: 2012Q4

REPORT INFORMATION
  Report Type: 
  Country: BR (occurrence: BR)
  Receive Date: 20120620
  Receipt Date: 20121008
  Transmission Date: 20130627
  Serious: Yes (Other)
  Sender: FDA-Public Use
  Company Number: BR-ASTRAZENECA-2012SE39531

PATIENT
  Age: 58 Year
  Sex: Female

DRUGS (3)
  1. CRESTOR [Suspect]
     Route: 048
  2. CRESTOR [Suspect]
     Route: 048
  3. SIMVASTATIN [Suspect]
     Route: 048
     Dates: start: 201208

REACTIONS (4)
  - Venous occlusion [Unknown]
  - Tachycardia [Not Recovered/Not Resolved]
  - Blood cholesterol increased [Not Recovered/Not Resolved]
  - Insomnia [Not Recovered/Not Resolved]
